FAERS Safety Report 10374772 (Version 1)
Quarter: 2014Q3

REPORT INFORMATION
  Report Type: Spontaneous
  Country: US (occurrence: None)
  Receive Date: 20140808
  Receipt Date: 20140808
  Transmission Date: 20150326
  Serious: Yes (Other)
  Sender: FDA-Public Use
  Company Number: None

PATIENT
  Age: 51 Year
  Sex: Female

DRUGS (1)
  1. COLGATE SENSITIVE PRO-RELIEF BASE [Suspect]
     Active Substance: POTASSIUM NITRATE\SODIUM FLUORIDE
     Indication: SENSITIVITY OF TEETH
     Route: 048
     Dates: start: 20140806, end: 20140806

REACTIONS (1)
  - Angioedema [None]

NARRATIVE: CASE EVENT DATE: 20140806
